FAERS Safety Report 6439845-5 (Version None)
Quarter: 2009Q4

REPORT INFORMATION
  Report Type: 
  Country: None (occurrence: None)
  Receive Date: 20091112
  Receipt Date: 20091112
  Transmission Date: 20100525
  Serious: No
  Sender: FDA-Public Use
  Company Number: None

PATIENT
  Age: 47 Year
  Sex: Female

DRUGS (2)
  1. SERTRALINE HCL [Suspect]
     Indication: DEPRESSION
     Dosage: ONE 2AM PO
     Route: 048
     Dates: start: 20090504
  2. SERTRALINE HCL [Suspect]
     Indication: POST-TRAUMATIC STRESS DISORDER
     Dosage: ONE 2AM PO
     Route: 048
     Dates: start: 20090504

REACTIONS (3)
  - PRODUCT SUBSTITUTION ISSUE [None]
  - SWOLLEN TONGUE [None]
  - TONGUE BLISTERING [None]
